FAERS Safety Report 7281630 (Version 3)
Quarter: 2014Q4

REPORT INFORMATION
  Report Type: Spontaneous
  Country: GB (occurrence: GB)
  Receive Date: 20100217
  Receipt Date: 20141219
  Transmission Date: 20150529
  Serious: Yes (Death, Other)
  Sender: FDA-Public Use
  Company Number: GB-PFIZER INC-2010015301

PATIENT
  Age: 31 Year
  Sex: Male
  Weight: 100 kg

DRUGS (9)
  1. PETHIDINE [Concomitant]
     Active Substance: MEPERIDINE
  2. MORPHINE [Concomitant]
     Active Substance: MORPHINE
  3. TRAMADOL [Concomitant]
     Active Substance: TRAMADOL
  4. DEBRISOQUINE [Interacting]
     Active Substance: DEBRISOQUIN
     Indication: PAIN
     Dosage: 10 MG, 1X/DAY
     Dates: start: 20020107
  5. CO-PROXAMOL [Concomitant]
     Active Substance: ACETAMINOPHEN\PROPOXYPHENE HYDROCHLORIDE
  6. DICLOFENAC [Concomitant]
     Active Substance: DICLOFENAC
  7. GABAPENTIN. [Suspect]
     Active Substance: GABAPENTIN
     Indication: PAIN
     Dosage: 300 MG, 1X/DAY
     Route: 048
     Dates: start: 20020107
  8. METHADONE [Interacting]
     Active Substance: METHADONE HYDROCHLORIDE
     Indication: PAIN
     Dosage: UNK
     Route: 048
     Dates: start: 20020115
  9. DIHYDROCODEINE [Concomitant]
     Active Substance: DIHYDROCODEINE

REACTIONS (4)
  - Drug interaction [Unknown]
  - Death [Fatal]
  - Cyanosis [Not Recovered/Not Resolved]
  - Pulmonary oedema [Not Recovered/Not Resolved]

NARRATIVE: CASE EVENT DATE: 20020119
